FAERS Safety Report 6222162-6 (Version None)
Quarter: 2009Q2

REPORT INFORMATION
  Report Type: 
  Country: None (occurrence: None)
  Receive Date: 20090611
  Receipt Date: 20090603
  Transmission Date: 20091009
  Serious: Yes (Other)
  Sender: FDA-Public Use
  Company Number: US-ROCHE-629879

PATIENT
  Age: 85 Year
  Sex: Female

DRUGS (10)
  1. BONIVA [Suspect]
     Indication: OSTEOPOROSIS
     Dosage: START DATE: BEFORE JANUARY 2009, MISSED DOSE IN MAY 2009
     Route: 048
  2. LEVOXYL [Concomitant]
  3. HYDROCODONE BITARTRATE [Concomitant]
  4. APAP TAB [Concomitant]
  5. ASPIRIN [Concomitant]
  6. DILTIAZAM [Concomitant]
  7. LIPITOR [Concomitant]
  8. CILOSTAZOL [Concomitant]
  9. ATENOLOL [Concomitant]
  10. IMDUR [Concomitant]

REACTIONS (8)
  - CEREBROVASCULAR DISORDER [None]
  - CONVULSION [None]
  - DIZZINESS [None]
  - FEELING ABNORMAL [None]
  - RASH [None]
  - TOOTH EXTRACTION [None]
  - TREMOR [None]
  - VISUAL IMPAIRMENT [None]
